FAERS Safety Report 5012785-4 (Version None)
Quarter: 2006Q2

REPORT INFORMATION
  Report Type: 
  Country: None (occurrence: None)
  Receive Date: 20060530
  Receipt Date: 20060302
  Transmission Date: 20061013
  Serious: Yes (Other)
  Sender: FDA-Public Use
  Company Number: US-BRISTOL-MYERS SQUIBB COMPANY-13301643

PATIENT
  Age: 58 Year
  Sex: Male

DRUGS (3)
  1. ERBITUX [Suspect]
     Indication: COLORECTAL CANCER METASTATIC
     Dosage: INITIAL DOSE 400 MG/M2 IV ON 16-FEB-2006/F/B 250 MG/M2 ON 24-FEB-2006.
     Route: 042
     Dates: start: 20060224, end: 20060224
  2. BENADRYL [Concomitant]
     Indication: PREMEDICATION
     Dosage: DIPHENHYDRAMINE 50 MG IV WITH THE FIRST INFUSION ON 16-FEB-2006.
     Route: 048
     Dates: start: 20060224, end: 20060224
  3. TYLENOL (GELTAB) [Concomitant]
     Indication: PREMEDICATION
     Dosage: ALSO ADMINISTERED WITH FIRST INFUSION ON 16-FEB-2006.
     Route: 048
     Dates: start: 20060224, end: 20060224

REACTIONS (1)
  - RASH PUSTULAR [None]
